FAERS Safety Report 23703898 (Version 1)
Quarter: 2024Q2

REPORT INFORMATION
  Report Type: Spontaneous
  Country: JP (occurrence: JP)
  Receive Date: 20240403
  Receipt Date: 20240403
  Transmission Date: 20240716
  Serious: Yes (Death)
  Sender: FDA-Public Use
  Company Number: JP-BAYER-2024A046962

PATIENT

DRUGS (1)
  1. EYLEA [Suspect]
     Active Substance: AFLIBERCEPT
     Indication: Retinopathy of prematurity
     Dosage: UNK, SOLUTION FOR INJECTION, 40 MG/ML
     Route: 031
     Dates: start: 20240206

REACTIONS (1)
  - Death [Fatal]

NARRATIVE: CASE EVENT DATE: 20240320
